FAERS Safety Report 12634776 (Version 1)
Quarter: 2016Q3

REPORT INFORMATION
  Report Type: Spontaneous
  Country: US (occurrence: None)
  Receive Date: 20160808
  Receipt Date: 20160808
  Transmission Date: 20161109
  Serious: Yes (Hospitalization, Other)
  Sender: FDA-Public Use
  Company Number: None

PATIENT
  Age: 25 Year
  Sex: Female
  Weight: 72.58 kg

DRUGS (3)
  1. NOVOLOG [Concomitant]
     Active Substance: INSULIN ASPART
  2. LANTUS [Concomitant]
     Active Substance: INSULIN GLARGINE
  3. MIRENA [Suspect]
     Active Substance: LEVONORGESTREL

REACTIONS (3)
  - Abdominal pain [None]
  - Adnexal torsion [None]
  - Ovarian cyst [None]

NARRATIVE: CASE EVENT DATE: 20160720
